FAERS Safety Report 21936370 (Version 2)
Quarter: 2023Q1

REPORT INFORMATION
  Report Type: Spontaneous
  Country: BR (occurrence: BR)
  Receive Date: 20230201
  Receipt Date: 20230211
  Transmission Date: 20230418
  Serious: Yes (Other)
  Sender: FDA-Public Use
  Company Number: BR-002147023-NVSC2023BR021552

PATIENT
  Sex: Female
  Weight: 65 kg

DRUGS (4)
  1. PANTOPRAZOLE SODIUM [Suspect]
     Active Substance: PANTOPRAZOLE SODIUM
     Indication: Reflux gastritis
     Dosage: 1 DOSAGE FORM, QD (1 TABLET)
     Route: 048
     Dates: start: 2009
  2. DOMPERIDONE [Concomitant]
     Active Substance: DOMPERIDONE
     Indication: Reflux gastritis
     Dosage: 1 DOSAGE FORM, BID
     Route: 048
     Dates: start: 2001
  3. RITUXIMAB [Concomitant]
     Active Substance: RITUXIMAB
     Indication: Rheumatic disorder
     Dosage: UNK (2 FLASKS (VIAL), TWO BOTTLES AFTER 20 DAYS  APPLY TWO  BOTTLE S AND AT  THEN HAS A  BREAK OF 9
     Route: 042
  4. RITUXIMAB [Concomitant]
     Active Substance: RITUXIMAB
     Indication: Osteoarthritis

REACTIONS (1)
  - Cataract [Recovered/Resolved]

NARRATIVE: CASE EVENT DATE: 20160101
